FAERS Safety Report 23808105 (Version 1)
Quarter: 2024Q2

REPORT INFORMATION
  Report Type: Spontaneous
  Country: US (occurrence: None)
  Receive Date: 20240501
  Receipt Date: 20240501
  Transmission Date: 20240716
  Serious: No
  Sender: FDA-Public Use
  Company Number: None

PATIENT
  Age: 35 Year
  Sex: Female

DRUGS (4)
  1. DARZALEX [Suspect]
     Active Substance: DARATUMUMAB
  2. REVLIMID [Concomitant]
  3. CARFILZOMIB [Concomitant]
  4. DEXAMETHASONE [Concomitant]

REACTIONS (3)
  - Tumour lysis syndrome [None]
  - Acute kidney injury [None]
  - Dialysis [None]
